FAERS Safety Report 24937065 (Version 1)
Quarter: 2025Q1

REPORT INFORMATION
  Report Type: Spontaneous
  Country: US (occurrence: US)
  Receive Date: 20250206
  Receipt Date: 20250206
  Transmission Date: 20250408
  Serious: Yes (Other)
  Sender: MERCK
  Company Number: US-009507513-2502USA001747

PATIENT
  Age: 49 Year
  Sex: Female

DRUGS (1)
  1. KEYTRUDA [Suspect]
     Active Substance: PEMBROLIZUMAB
     Indication: Invasive ductal breast carcinoma

REACTIONS (1)
  - Neuromyelitis optica spectrum disorder [Unknown]
